FAERS Safety Report 20083197 (Version 1)
Quarter: 2021Q4

REPORT INFORMATION
  Report Type: Report from Study
  Country: ES (occurrence: ES)
  Receive Date: 20211117
  Receipt Date: 20211117
  Transmission Date: 20220303
  Serious: Yes (Other)
  Sender: FDA-Public Use
  Company Number: ES-SA-SAC20210901001079

PATIENT
  Age: 78 Year
  Sex: Female
  Weight: 37 kg

DRUGS (3)
  1. METFORMIN [Suspect]
     Active Substance: METFORMIN HYDROCHLORIDE
     Indication: Type 2 diabetes mellitus
     Dosage: 0.5 DOSAGE FORM, Q8H
     Route: 048
  2. INSULIN GLARGINE [Suspect]
     Active Substance: INSULIN GLARGINE
     Indication: Type 2 diabetes mellitus
     Dosage: 6 INTERNATIONAL UNIT, QD
     Route: 058
  3. JARDIANCE [Concomitant]
     Active Substance: EMPAGLIFLOZIN
     Indication: Type 2 diabetes mellitus
     Dosage: 1 DOSAGE FORM, QD
     Route: 048

REACTIONS (6)
  - Blood glucose decreased [Unknown]
  - Hypoglycaemia [Recovered/Resolved]
  - Diarrhoea [Unknown]
  - Depressed level of consciousness [Recovered/Resolved]
  - Decreased appetite [Unknown]
  - Feeling abnormal [Unknown]
